FAERS Safety Report 6354162-X (Version None)
Quarter: 2009Q3

REPORT INFORMATION
  Report Type: 
  Country: None (occurrence: None)
  Receive Date: 20090914
  Receipt Date: 20090903
  Transmission Date: 20100115
  Serious: Yes (Other)
  Sender: FDA-Public Use
  Company Number: US-JNJFOC-20090902567

PATIENT
  Sex: Female
  Weight: 63.5 kg

DRUGS (11)
  1. REMICADE [Suspect]
     Route: 042
     Dates: start: 20040101, end: 20090810
  2. REMICADE [Suspect]
     Indication: RHEUMATOID ARTHRITIS
     Route: 042
     Dates: start: 20040101, end: 20090810
  3. GLUCOPHAGE [Concomitant]
     Indication: DIABETES MELLITUS
  4. AMARYL [Concomitant]
     Indication: DIABETES MELLITUS
  5. ARAVA [Concomitant]
     Indication: RHEUMATOID ARTHRITIS
  6. LOTREL [Concomitant]
     Indication: BLOOD PRESSURE
  7. AVALIDE [Concomitant]
     Indication: BLOOD PRESSURE
  8. TRICOR [Concomitant]
     Indication: BLOOD TRIGLYCERIDES
  9. EVISTA [Concomitant]
     Indication: BONE DISORDER
  10. NEXIUM [Concomitant]
     Indication: GASTRIC DISORDER
  11. TYLENOL W/ CODEINE [Concomitant]
     Indication: PAIN

REACTIONS (2)
  - SWOLLEN TONGUE [None]
  - TONGUE ULCERATION [None]
